FAERS Safety Report 16306872 (Version 4)
Quarter: 2020Q1

REPORT INFORMATION
  Report Type: Spontaneous
  Country: AT (occurrence: AT)
  Receive Date: 20190513
  Receipt Date: 20200110
  Transmission Date: 20200409
  Serious: Yes (Other)
  Sender: FDA-Public Use
  Company Number: PHHY2019AT108756

PATIENT
  Sex: Male
  Weight: 99 kg

DRUGS (15)
  1. EUTHYROX [Concomitant]
     Active Substance: LEVOTHYROXINE SODIUM
     Dosage: 1 DF, QW (1X PER WEEK 1/1/2-0-0)
     Route: 065
  2. VITAMINS WITH MINERALS [Concomitant]
     Active Substance: MINERALS\VITAMINS
     Indication: PRODUCT USED FOR UNKNOWN INDICATION
     Dosage: 1 DF, QD
     Route: 065
  3. MIRANAX [Concomitant]
     Indication: PRODUCT USED FOR UNKNOWN INDICATION
     Dosage: UNK
     Route: 065
  4. EXFORGE [Suspect]
     Active Substance: AMLODIPINE BESYLATE\VALSARTAN
     Indication: PRODUCT USED FOR UNKNOWN INDICATION
     Dosage: 1 DF, QD
     Route: 065
  5. ATORVASTATIN [Suspect]
     Active Substance: ATORVASTATIN
     Indication: PRODUCT USED FOR UNKNOWN INDICATION
     Route: 065
  6. NITROLINGUAL [Concomitant]
     Active Substance: NITROGLYCERIN
     Indication: PRODUCT USED FOR UNKNOWN INDICATION
     Route: 065
  7. VALSARTAN SANDOZ [Suspect]
     Active Substance: VALSARTAN
     Indication: PRODUCT USED FOR UNKNOWN INDICATION
     Dosage: 1 DF, QD (IN THE MORNING)
     Route: 065
  8. RENNIE SPEARMINT [Concomitant]
     Indication: PRODUCT USED FOR UNKNOWN INDICATION
     Dosage: UNK
     Route: 065
  9. THYREX 125 MIKROGRAMM - TABLETTEN [Suspect]
     Active Substance: LEVOTHYROXINE SODIUM
     Indication: PRODUCT USED FOR UNKNOWN INDICATION
     Route: 065
  10. DIOVAN [Suspect]
     Active Substance: VALSARTAN
     Indication: HYPERTENSION
     Dosage: 160 MG, BID (1-0-1)
     Route: 065
  11. DILTIAZEM. [Concomitant]
     Active Substance: DILTIAZEM
     Indication: BLOOD PRESSURE INCREASED
     Route: 065
  12. EUTHYROX [Concomitant]
     Active Substance: LEVOTHYROXINE SODIUM
     Indication: PRODUCT USED FOR UNKNOWN INDICATION
     Dosage: 1 DF, QD (FOR 6 DAYS/WEEK)
     Route: 065
  13. APREDNISLON [Concomitant]
     Active Substance: PREDNISOLONE
     Indication: PRODUCT USED FOR UNKNOWN INDICATION
     Route: 065
  14. PANTOPRAZOLE SODIUM. [Suspect]
     Active Substance: PANTOPRAZOLE SODIUM
     Indication: PRODUCT USED FOR UNKNOWN INDICATION
     Dosage: 1 DF, QD (1-0-0)
     Route: 065
  15. PREDNISOLONE. [Concomitant]
     Active Substance: PREDNISOLONE
     Indication: PRODUCT USED FOR UNKNOWN INDICATION
     Dosage: UNK UNK, QD (1/4-0-0)
     Route: 065

REACTIONS (37)
  - Tachycardia [Unknown]
  - Ill-defined disorder [Unknown]
  - Haematoma [Unknown]
  - Seroma [Unknown]
  - Nervousness [Unknown]
  - Skin irritation [Unknown]
  - Hypertension [Unknown]
  - Pruritus [Unknown]
  - Chromophobe renal cell carcinoma [Unknown]
  - Dyslipidaemia [Unknown]
  - Urinary incontinence [Unknown]
  - Liver abscess [Unknown]
  - Obesity [Unknown]
  - Cholelithiasis [Unknown]
  - Myalgia [Unknown]
  - Bladder pain [Unknown]
  - Dyspepsia [Unknown]
  - Gastritis [Unknown]
  - Cutaneous lupus erythematosus [Unknown]
  - Hypoacusis [Unknown]
  - Eructation [Unknown]
  - Spinal pain [Unknown]
  - Hiatus hernia [Unknown]
  - Dizziness [Unknown]
  - Procedural pain [Unknown]
  - Diverticulum intestinal [Unknown]
  - Intervertebral disc protrusion [Unknown]
  - Swollen tongue [Unknown]
  - Polyp [Unknown]
  - Dysuria [Unknown]
  - Chromaturia [Unknown]
  - Skin lesion [Unknown]
  - Flatulence [Unknown]
  - Dysgeusia [Unknown]
  - Tinnitus [Unknown]
  - Blister [Unknown]
  - Malaise [Unknown]

NARRATIVE: CASE EVENT DATE: 20151010
